FAERS Safety Report 24932683 (Version 1)
Quarter: 2025Q1

REPORT INFORMATION
  Report Type: Report from Study
  Country: IN (occurrence: IN)
  Receive Date: 20250205
  Receipt Date: 20250205
  Transmission Date: 20250408
  Serious: No
  Sender: EXELIXIS
  Company Number: IN-BRISTOL-MYERS SQUIBB COMPANY-2024-149243

PATIENT
  Age: 40 Year
  Sex: Male

DRUGS (3)
  1. CABOMETYX [Suspect]
     Active Substance: CABOZANTINIB S-MALATE
     Indication: Renal cell carcinoma
  2. NIVOLUMAB [Suspect]
     Active Substance: NIVOLUMAB
     Indication: Renal cell carcinoma
     Dosage: 240 MG, Q2WEEKS
     Route: 042
     Dates: start: 20240622
  3. NIVOLUMAB [Suspect]
     Active Substance: NIVOLUMAB
     Dosage: 240 MG, Q2WEEKS
     Route: 042
     Dates: start: 20240622

REACTIONS (1)
  - Treatment noncompliance [Unknown]
